FAERS Safety Report 7437430-X (Version None)
Quarter: 2011Q2

REPORT INFORMATION
  Report Type: 
  Country: None (occurrence: None)
  Receive Date: 20110426
  Receipt Date: 20110405
  Transmission Date: 20111010
  Serious: Yes (Hospitalization)
  Sender: FDA-Public Use
  Company Number: FR-PFIZER INC-2005026444

PATIENT
  Age: 85 Year
  Sex: Female

DRUGS (7)
  1. CORDARONE [Suspect]
     Indication: ATRIAL FIBRILLATION
  2. DIFFU K [Suspect]
     Indication: PRODUCT USED FOR UNKNOWN INDICATION
     Dosage: 600 MG, 1X/DAY
     Route: 048
  3. CORDARONE [Suspect]
     Indication: ATRIAL FLUTTER
     Dosage: 200 MG UNIT DOSE, 5 TIMES A WEEK
     Route: 048
     Dates: start: 19980601, end: 20041119
  4. AMLODIPINE BESYLATE [Suspect]
     Indication: ESSENTIAL HYPERTENSION
     Dosage: 5 MG, 1X/DAY
     Route: 048
  5. ATARAX [Suspect]
     Indication: PRODUCT USED FOR UNKNOWN INDICATION
     Dosage: 12.5 MG, 1X/DAY
     Route: 048
  6. SINTROM [Suspect]
     Indication: PHLEBITIS
     Dosage: 1 MG, 1X/DAY
     Route: 048
     Dates: start: 20041202
  7. SINTROM [Suspect]
     Indication: THROMBOPHLEBITIS

REACTIONS (1)
  - INTERSTITIAL LUNG DISEASE [None]
